FAERS Safety Report 25686481 (Version 2)
Quarter: 2025Q3

REPORT INFORMATION
  Report Type: Spontaneous
  Country: US (occurrence: US)
  Receive Date: 20250815
  Receipt Date: 20250918
  Transmission Date: 20251021
  Serious: Yes (Hospitalization)
  Sender: ELI LILLY AND COMPANY
  Company Number: US-ELI_LILLY_AND_COMPANY-US202508012369

PATIENT
  Age: 43 Year
  Sex: Female
  Weight: 58.2 kg

DRUGS (8)
  1. MOUNJARO [Suspect]
     Active Substance: TIRZEPATIDE
     Indication: Product used for unknown indication
     Dosage: 2.5 MG, WEEKLY (1/W)
     Route: 058
     Dates: start: 20250601
  2. MOUNJARO [Suspect]
     Active Substance: TIRZEPATIDE
     Indication: Product used for unknown indication
     Dosage: 2.5 MG, WEEKLY (1/W)
     Route: 058
     Dates: start: 20250601
  3. MOUNJARO [Suspect]
     Active Substance: TIRZEPATIDE
     Indication: Product used for unknown indication
     Dosage: 2.5 MG, WEEKLY (1/W)
     Route: 058
     Dates: start: 20250601
  4. MOUNJARO [Suspect]
     Active Substance: TIRZEPATIDE
     Indication: Product used for unknown indication
     Dosage: 2.5 MG, WEEKLY (1/W)
     Route: 058
     Dates: start: 20250601
  5. MOUNJARO [Suspect]
     Active Substance: TIRZEPATIDE
     Dosage: 3 MG, WEEKLY (1/W)
     Route: 058
     Dates: start: 20250627
  6. MOUNJARO [Suspect]
     Active Substance: TIRZEPATIDE
     Dosage: 3 MG, WEEKLY (1/W)
     Route: 058
     Dates: start: 20250627
  7. MOUNJARO [Suspect]
     Active Substance: TIRZEPATIDE
     Dosage: 3 MG, WEEKLY (1/W)
     Route: 058
     Dates: start: 20250627
  8. MOUNJARO [Suspect]
     Active Substance: TIRZEPATIDE
     Dosage: 3 MG, WEEKLY (1/W)
     Route: 058
     Dates: start: 20250627

REACTIONS (9)
  - Hypophagia [Recovered/Resolved]
  - Metabolic acidosis [Recovered/Resolved]
  - Throat irritation [Recovered/Resolved]
  - Nausea [Recovered/Resolved]
  - Vomiting [Recovered/Resolved]
  - Dehydration [Recovered/Resolved]
  - Constipation [Not Recovered/Not Resolved]
  - Gastrooesophageal reflux disease [Recovered/Resolved]
  - Eructation [Recovered/Resolved]

NARRATIVE: CASE EVENT DATE: 20250711
